FAERS Safety Report 17257427 (Version 1)
Quarter: 2020Q1

REPORT INFORMATION
  Report Type: Report from Study
  Country: BR (occurrence: BR)
  Receive Date: 20200110
  Receipt Date: 20200110
  Transmission Date: 20200409
  Serious: Yes (Life-Threatening)
  Sender: FDA-Public Use
  Company Number: NVSC2020BR004376

PATIENT
  Age: 75 Year
  Sex: Female

DRUGS (2)
  1. COSENTYX [Suspect]
     Active Substance: SECUKINUMAB
     Dosage: 150 MG
     Route: 065
     Dates: start: 20191214
  2. COSENTYX [Suspect]
     Active Substance: SECUKINUMAB
     Indication: PSORIATIC ARTHROPATHY
     Dosage: 150 MG
     Route: 065
     Dates: start: 20191130

REACTIONS (9)
  - Pain of skin [Recovering/Resolving]
  - Feeling abnormal [Recovered/Resolved]
  - Malaise [Recovering/Resolving]
  - Product prescribing error [Unknown]
  - Burning sensation [Recovering/Resolving]
  - Dyspnoea [Recovered/Resolved]
  - Hypertension [Unknown]
  - Pruritus [Not Recovered/Not Resolved]
  - Insomnia [Recovering/Resolving]

NARRATIVE: CASE EVENT DATE: 20191130
